FAERS Safety Report 9028853 (Version 2)
Quarter: 2013Q1

REPORT INFORMATION
  Report Type: Spontaneous
  Country: GB (occurrence: GB)
  Receive Date: 20130124
  Receipt Date: 20130308
  Transmission Date: 20140127
  Serious: Yes (Hospitalization)
  Sender: FDA-Public Use
  Company Number: GB-009507513-1301GBR009812

PATIENT
  Age: 77 Year
  Sex: Male

DRUGS (12)
  1. DEXAMETHASONE [Suspect]
     Indication: PLASMA CELL MYELOMA
     Dosage: 20 MG, DAILY, DAYS 1-4, 9-12, 17-20
     Route: 048
     Dates: start: 201011, end: 201102
  2. WARFARIN SODIUM [Interacting]
     Indication: THROMBOSIS PROPHYLAXIS
     Dosage: UNK
     Route: 065
     Dates: start: 201011, end: 2010
  3. LENALIDOMIDE [Interacting]
     Indication: PLASMA CELL MYELOMA
     Dosage: 25 MG, QD DAYS 1-21
     Dates: start: 201011, end: 201102
  4. CLOPIDOGREL [Concomitant]
     Dosage: 75 MG, QD
  5. ASPIRIN [Concomitant]
     Dosage: 75 MG, QD
  6. ISOSORBIDE MONONITRATE [Concomitant]
     Dosage: 60 MG, UNK
  7. ADIZEM [Concomitant]
     Dosage: 240 MG, BID
  8. CLODRONATE DISODIUM [Concomitant]
     Dosage: 1.6 G, QD
  9. OMEPRAZOLE [Concomitant]
     Dosage: 40 MG, QD
  10. ATORVASTATIN [Concomitant]
     Dosage: 80 MG, QD
  11. NITROGLYCERIN [Concomitant]
     Indication: CHEST PAIN
     Dosage: 1-2 PUF, PRN
  12. ACETAMINOPHEN [Concomitant]
     Dosage: 1 G, PRN

REACTIONS (5)
  - Pulmonary embolism [Unknown]
  - Drug interaction [Unknown]
  - International normalised ratio decreased [Unknown]
  - Venous thrombosis [Unknown]
  - Arterial thrombosis [Unknown]
